FAERS Safety Report 5578740-0 (Version None)
Quarter: 2007Q4

REPORT INFORMATION
  Report Type: 
  Country: None (occurrence: None)
  Receive Date: 20071227
  Receipt Date: 20071212
  Transmission Date: 20080405
  Serious: Yes (Life-Threatening)
  Sender: FDA-Public Use
  Company Number: 8028607

PATIENT
  Sex: Female

DRUGS (1)
  1. THEOPHYLLINE [Suspect]

REACTIONS (3)
  - DRUG TOXICITY [None]
  - METABOLIC DISORDER [None]
  - SUICIDE ATTEMPT [None]
